FAERS Safety Report 13771970 (Version 1)
Quarter: 2017Q3

REPORT INFORMATION
  Report Type: Spontaneous
  Country: AU (occurrence: AU)
  Receive Date: 20170720
  Receipt Date: 20170720
  Transmission Date: 20171127
  Serious: Yes (Hospitalization)
  Sender: FDA-Public Use
  Company Number: AU-ACTELION-A-CH2017-156061

PATIENT
  Age: 35 Year
  Sex: Female

DRUGS (1)
  1. VELETRI [Suspect]
     Active Substance: EPOPROSTENOL
     Indication: PULMONARY ARTERIAL HYPERTENSION
     Dosage: 1.5 MG, UNK
     Route: 042

REACTIONS (7)
  - Device related infection [Recovered/Resolved]
  - Central venous catheterisation [Recovered/Resolved]
  - Sepsis [Recovered/Resolved]
  - Culture urine positive [Recovered/Resolved]
  - C-reactive protein increased [Recovered/Resolved]
  - Staphylococcus test positive [Recovered/Resolved]
  - Candida test positive [Recovered/Resolved]

NARRATIVE: CASE EVENT DATE: 20170602
